FAERS Safety Report 9582133 (Version 1)
Quarter: 2013Q4

REPORT INFORMATION
  Report Type: Spontaneous
  Country: US (occurrence: US)
  Receive Date: 20131002
  Receipt Date: 20131002
  Transmission Date: 20140711
  Serious: No
  Sender: FDA-Public Use
  Company Number: US-AMGEN-USASP2013043938

PATIENT
  Age: 35 Year
  Sex: Female
  Weight: 90.7 kg

DRUGS (2)
  1. ENBREL [Suspect]
     Indication: RHEUMATOID ARTHRITIS
     Dosage: UNK
     Dates: start: 2011, end: 2013
  2. HUMIRA [Concomitant]
     Dosage: UNK

REACTIONS (1)
  - Therapeutic response decreased [Not Recovered/Not Resolved]
